FAERS Safety Report 16245213 (Version 30)
Quarter: 2025Q3

REPORT INFORMATION
  Report Type: Spontaneous
  Country: US (occurrence: US)
  Receive Date: 20190426
  Receipt Date: 20250910
  Transmission Date: 20251020
  Serious: Yes (Other)
  Sender: PFIZER
  Company Number: US-PFIZER INC-2018207247

PATIENT
  Age: 41 Year
  Sex: Female
  Weight: 60.78 kg

DRUGS (24)
  1. PREMARIN [Suspect]
     Active Substance: ESTROGENS, CONJUGATED
     Indication: Hot flush
     Dates: start: 1976
  2. PREMARIN [Suspect]
     Active Substance: ESTROGENS, CONJUGATED
     Indication: Anxiety
     Dosage: STARTED PREMARIN 1.25MG IN 1988 OR 1989
     Route: 048
  3. PREMARIN [Suspect]
     Active Substance: ESTROGENS, CONJUGATED
     Indication: Mood swings
     Dosage: 2 TABLETS TWO A DAY
     Route: 048
     Dates: start: 1990
  4. PREMARIN [Suspect]
     Active Substance: ESTROGENS, CONJUGATED
     Indication: Hormone replacement therapy
     Dosage: TWO TABLETS AT NIGHT/ 2 OF THE 1.25 PILLS IN THE EVENING BY MOUTH
     Route: 048
     Dates: start: 1990
  5. PREMARIN [Suspect]
     Active Substance: ESTROGENS, CONJUGATED
     Indication: Blood oestrogen abnormal
     Dosage: 2.5 MG, DAILY
  6. PREMARIN [Suspect]
     Active Substance: ESTROGENS, CONJUGATED
     Indication: Loss of consciousness
     Dosage: TAKES 2 PILLS EVERY NIGHT
  7. PREMARIN [Suspect]
     Active Substance: ESTROGENS, CONJUGATED
     Indication: Menopause
     Dosage: TAKE 1 (ONE) TABLET (1.25 MG TOTAL) BY MOUTH DAILY
     Route: 048
  8. PREMARIN [Suspect]
     Active Substance: ESTROGENS, CONJUGATED
     Indication: Panic attack
     Dosage: AT NIGHT ONCE A DAY
     Route: 048
  9. PREMARIN [Suspect]
     Active Substance: ESTROGENS, CONJUGATED
     Indication: Seizure
     Dosage: I TAKE ONE TABLET DAILY AT NIGHT
     Route: 048
  10. PREMARIN [Suspect]
     Active Substance: ESTROGENS, CONJUGATED
     Indication: Blood oestrogen decreased
  11. PREMARIN [Suspect]
     Active Substance: ESTROGENS, CONJUGATED
     Indication: Atrophic vulvovaginitis
  12. HYDROCODONE [Concomitant]
     Active Substance: HYDROCODONE
     Indication: Fibromyalgia
  13. HYDROCODONE [Concomitant]
     Active Substance: HYDROCODONE
     Dosage: I TAKE ONE AT NIGHT UNLESS I NEED WONDERING TODAY. SOMETIMES I DO
  14. CALCIUM [Concomitant]
     Active Substance: CALCIUM
  15. TRAZODONE [Concomitant]
     Active Substance: TRAZODONE HYDROCHLORIDE
     Dosage: I TAKE ONE TABLET AT NIGHT
  16. CYCLOBENZAPRINE [Concomitant]
     Active Substance: CYCLOBENZAPRINE
     Indication: Muscle spasms
     Dosage: I TAKE IT TWICE A DAY. ONCE IN THE MORNING AND ONE AT NIGHT
  17. PRAVASTATIN [Concomitant]
     Active Substance: PRAVASTATIN
     Indication: Blood cholesterol abnormal
  18. NORTRIPTYLINE [Concomitant]
     Active Substance: NORTRIPTYLINE
     Dosage: I TAKE THAT STRAIGHT AT NIGHT
  19. LEVOTHYROXINE [Concomitant]
     Active Substance: LEVOTHYROXINE
     Indication: Thyroid disorder
     Dosage: I TAKE ONE TABLET A DAY
  20. ALLOPURINOL [Concomitant]
     Active Substance: ALLOPURINOL
     Indication: Thyroid disorder
  21. FUROSEMIDE [Concomitant]
     Active Substance: FUROSEMIDE
  22. DILTIAZEM [Concomitant]
     Active Substance: DILTIAZEM
     Dosage: I TAKE ONE TABLET DAILY
  23. OMEPRAZOLE [Concomitant]
     Active Substance: OMEPRAZOLE
  24. DIPHENOXYLATE [Concomitant]
     Active Substance: DIPHENOXYLATE
     Dosage: I TAKE TWO PILLS A DAY. ONE IN THE MORNING AND ONE AT NIGHT

REACTIONS (5)
  - Gastric bypass [Unknown]
  - Therapeutic product effect incomplete [Unknown]
  - Migraine [Not Recovered/Not Resolved]
  - Product dispensing error [Unknown]
  - Off label use [Unknown]

NARRATIVE: CASE EVENT DATE: 19900101
